FAERS Safety Report 7900911 (Version 2)
Quarter: 2013Q1

REPORT INFORMATION
  Report Type: Spontaneous
  Country: US (occurrence: US)
  Receive Date: 20110415
  Receipt Date: 20130208
  Transmission Date: 20140127
  Serious: Yes (Other)
  Sender: FDA-Public Use
  Company Number: US-ROCHE-756585

PATIENT
  Age: 14 Year
  Sex: Female
  Weight: 52.2 kg

DRUGS (5)
  1. ACCUTANE [Suspect]
     Indication: ACNE
     Route: 048
     Dates: start: 200108, end: 20020109
  2. ACCUTANE [Suspect]
     Route: 048
     Dates: start: 20030115, end: 200306
  3. ACCUTANE [Suspect]
     Route: 048
  4. ORTHO TRI CYCLEN [Concomitant]
     Indication: CONTRACEPTION
  5. MINOCYCLINE [Concomitant]
     Indication: ACNE

REACTIONS (8)
  - Crohn^s disease [Unknown]
  - Large intestine polyp [Unknown]
  - Melanocytic naevus [Unknown]
  - Acne [Unknown]
  - Sunburn [Unknown]
  - Irritable bowel syndrome [Unknown]
  - Diverticulum intestinal [Unknown]
  - Dry skin [Unknown]
